FAERS Safety Report 9171103 (Version 1)
Quarter: 2013Q1

REPORT INFORMATION
  Report Type: Spontaneous
  Country: FR (occurrence: FR)
  Receive Date: 20130319
  Receipt Date: 20130319
  Transmission Date: 20140127
  Serious: Yes (Life-Threatening)
  Sender: FDA-Public Use
  Company Number: FR-ROCHE-1202727

PATIENT
  Age: 88 Year
  Sex: Female

DRUGS (11)
  1. ROCEPHINE [Suspect]
     Indication: URINARY TRACT INFECTION
     Route: 058
     Dates: start: 20130204
  2. OFLOCET [Suspect]
     Indication: URINARY TRACT INFECTION
     Route: 048
     Dates: start: 20130202, end: 20130204
  3. ALDACTONE [Concomitant]
     Route: 065
  4. CARDENSIEL [Concomitant]
     Route: 065
  5. DIFFU K [Concomitant]
  6. LEVOTHYROX [Concomitant]
     Route: 065
  7. PRETERAX [Concomitant]
  8. INEXIUM [Concomitant]
     Route: 065
  9. ASPIRINE [Concomitant]
     Route: 065
  10. FUMAFER [Concomitant]
  11. CLAFORAN [Concomitant]
     Route: 065

REACTIONS (1)
  - Multi-organ failure [Recovering/Resolving]
